FAERS Safety Report 24051984 (Version 1)
Quarter: 2024Q3

REPORT INFORMATION
  Report Type: Spontaneous
  Country: CA (occurrence: CA)
  Receive Date: 20240704
  Receipt Date: 20240704
  Transmission Date: 20241017
  Serious: Yes (Other)
  Sender: DAIICHI
  Company Number: CA-AstraZeneca-2024A146882

PATIENT
  Sex: Female

DRUGS (1)
  1. TRASTUZUMAB DERUXTECAN [Suspect]
     Active Substance: TRASTUZUMAB DERUXTECAN
     Indication: Breast cancer metastatic
     Dosage: 387 MG, ONCE EVERY 3 WK
     Route: 042

REACTIONS (4)
  - Cancer pain [Unknown]
  - Lung disorder [Unknown]
  - Metastases to bone [Unknown]
  - Nausea [Unknown]
